FAERS Safety Report 5406756-3 (Version None)
Quarter: 2007Q3

REPORT INFORMATION
  Report Type: 
  Country: None (occurrence: None)
  Receive Date: 20070807
  Receipt Date: 20070730
  Transmission Date: 20080115
  Serious: Yes (Hospitalization, Other)
  Sender: FDA-Public Use
  Company Number: PHRM2007FR01949

PATIENT
  Age: 33 Year
  Sex: Female

DRUGS (3)
  1. ESIDRIX [Suspect]
     Dosage: 25 MG, QD
     Route: 048
     Dates: end: 20070626
  2. PROGLYCEM [Suspect]
     Indication: HYPOGLYCAEMIA
     Dosage: 100 MG, TID
     Route: 048
     Dates: start: 20070626, end: 20070626
  3. PROGLYCEM [Suspect]
     Dosage: 200 MG MORNING, 100 MG NOON, 100 MG EVENING
     Route: 048
     Dates: start: 20070615, end: 20070625

REACTIONS (9)
  - C-REACTIVE PROTEIN INCREASED [None]
  - CONVULSION [None]
  - EPILEPSY [None]
  - HAEMOGLOBIN DECREASED [None]
  - HYPOGLYCAEMIA [None]
  - OEDEMA [None]
  - PLATELET COUNT DECREASED [None]
  - PYREXIA [None]
  - RASH [None]
